FAERS Safety Report 14558405 (Version 2)
Quarter: 2018Q1

REPORT INFORMATION
  Report Type: Report from Study
  Country: CA (occurrence: CA)
  Receive Date: 20180221
  Receipt Date: 20180308
  Transmission Date: 20180509
  Serious: Yes (Death, Hospitalization)
  Sender: FDA-Public Use
  Company Number: PHHY2016CA155475

PATIENT
  Sex: Female

DRUGS (3)
  1. REVOLADE [Suspect]
     Active Substance: ELTROMBOPAG
     Indication: APLASTIC ANAEMIA
     Dosage: 50 MG, UNK
     Route: 048
     Dates: start: 20161024
  2. REVOLADE [Suspect]
     Active Substance: ELTROMBOPAG
     Dosage: 100 MG, QD
     Route: 048
  3. REVOLADE [Suspect]
     Active Substance: ELTROMBOPAG
     Dosage: 75 MG, UNK
     Route: 048

REACTIONS (10)
  - Gingival bleeding [Unknown]
  - Constipation [Unknown]
  - Back pain [Unknown]
  - Infection [Fatal]
  - Chills [Unknown]
  - Epistaxis [Unknown]
  - Contusion [Unknown]
  - Pruritus [Unknown]
  - Dyspnoea [Unknown]
  - Fungal infection [Unknown]
